FAERS Safety Report 6148341-4 (Version None)
Quarter: 2009Q2

REPORT INFORMATION
  Report Type: 
  Country: None (occurrence: None)
  Receive Date: 20090408
  Receipt Date: 20090403
  Transmission Date: 20091009
  Serious: Yes (Hospitalization, Other)
  Sender: FDA-Public Use
  Company Number: HQWYE411820MAR06

PATIENT
  Sex: Female

DRUGS (5)
  1. PREMARIN [Suspect]
     Indication: OESTROGEN REPLACEMENT THERAPY
  2. PREMPRO [Suspect]
  3. NORETHINDRONE ACETATE [Suspect]
  4. MEDROXYPROGESTERONE ACETATE [Suspect]
     Indication: HORMONE REPLACEMENT THERAPY
  5. PROVERA [Suspect]
     Indication: HORMONE REPLACEMENT THERAPY

REACTIONS (1)
  - BREAST CANCER METASTATIC [None]
